FAERS Safety Report 7952141-X (Version None)
Quarter: 2011Q4

REPORT INFORMATION
  Report Type: 
  Country: None (occurrence: None)
  Receive Date: 20111201
  Receipt Date: 20111122
  Transmission Date: 20120403
  Serious: Yes (Death, Other)
  Sender: FDA-Public Use
  Company Number: PHHY2011US102807

PATIENT
  Age: 65 Year
  Sex: Female

DRUGS (3)
  1. CYCLOSPORINE [Suspect]
     Dosage: UNK UKN, UNK
  2. ANTI-THYMOCYTE GLOBULIN NOS [Concomitant]
     Dosage: UNK UKN, UNK
  3. METHYLPREDNISOLONE [Concomitant]
     Dosage: UNK UKN, UNK

REACTIONS (17)
  - AORTIC ANEURYSM [None]
  - SKIN NECROSIS [None]
  - PARONYCHIA [None]
  - AORTIC ANEURYSM RUPTURE [None]
  - DYSPNOEA [None]
  - SKIN OEDEMA [None]
  - THROMBOCYTOPENIA [None]
  - MYCOTIC ANEURYSM [None]
  - FUSARIUM INFECTION [None]
  - BLISTER [None]
  - ESCHAR [None]
  - PERICARDIAL EFFUSION [None]
  - CHEST PAIN [None]
  - SKIN MASS [None]
  - ERYTHEMA [None]
  - WHITE BLOOD CELL COUNT DECREASED [None]
  - NEUTROPHIL COUNT DECREASED [None]
